FAERS Safety Report 7763509-9 (Version None)
Quarter: 2011Q3

REPORT INFORMATION
  Report Type: 
  Country: None (occurrence: None)
  Receive Date: 20110920
  Receipt Date: 20110907
  Transmission Date: 20111222
  Serious: Yes (Hospitalization)
  Sender: FDA-Public Use
  Company Number: PHHO2009DE07179

PATIENT
  Sex: Male
  Weight: 87 kg

DRUGS (3)
  1. METHYLPREDNISOLONE [Suspect]
     Indication: RENAL TRANSPLANT
     Dosage: 360 MG, BID
     Route: 048
     Dates: start: 20090201, end: 20090610
  2. EVEROLIMUS [Suspect]
     Indication: RENAL TRANSPLANT
     Dosage: 0.5 MG, BID
     Route: 048
     Dates: start: 20090201, end: 20090610
  3. MYFORTIC [Suspect]
     Indication: RENAL TRANSPLANT
     Dosage: OPEN-LABEL
     Route: 048
     Dates: start: 20090201, end: 20090610

REACTIONS (4)
  - PNEUMONIA [None]
  - RENAL FAILURE ACUTE [None]
  - RESPIRATORY FAILURE [None]
  - KIDNEY TRANSPLANT REJECTION [None]
